FAERS Safety Report 13153457 (Version 1)
Quarter: 2017Q1

REPORT INFORMATION
  Report Type: Spontaneous
  Country: US (occurrence: US)
  Receive Date: 20170126
  Receipt Date: 20170126
  Transmission Date: 20170428
  Serious: No
  Sender: FDA-Public Use
  Company Number: US-HORIZON-PRE-0012-2017

PATIENT
  Sex: Male

DRUGS (1)
  1. RAYOS [Suspect]
     Active Substance: PREDNISONE
     Indication: BRONCHITIS

REACTIONS (4)
  - Insomnia [Unknown]
  - Mood swings [Unknown]
  - Increased appetite [Unknown]
  - Off label use [Unknown]
